FAERS Safety Report 13295942 (Version 2)
Quarter: 2017Q1

REPORT INFORMATION
  Report Type: Spontaneous
  Country: FR (occurrence: FR)
  Receive Date: 20170303
  Receipt Date: 20170321
  Transmission Date: 20170428
  Serious: Yes (Other)
  Sender: FDA-Public Use
  Company Number: PHHY2017FR029502

PATIENT
  Age: 20 Year
  Sex: Male
  Weight: 75 kg

DRUGS (2)
  1. COSENTYX [Suspect]
     Active Substance: SECUKINUMAB
     Indication: PSORIASIS
     Dosage: 2 DF,QW
     Route: 058
     Dates: start: 20170117, end: 20170214
  2. COSENTYX [Suspect]
     Active Substance: SECUKINUMAB
     Indication: PSORIATIC ARTHROPATHY

REACTIONS (12)
  - Pruritus [Unknown]
  - Angioedema [Recovered/Resolved]
  - Eyelid oedema [Unknown]
  - Rash [Unknown]
  - Anaphylactic reaction [Unknown]
  - Type I hypersensitivity [Unknown]
  - Urticaria [Recovering/Resolving]
  - Muscle spasms [Unknown]
  - Inappropriate schedule of drug administration [Unknown]
  - Dysphagia [Unknown]
  - Lip oedema [Unknown]
  - Skin oedema [Unknown]

NARRATIVE: CASE EVENT DATE: 20170201
